FAERS Safety Report 9146496 (Version 1)
Quarter: 2013Q1

REPORT INFORMATION
  Report Type: Spontaneous
  Country: US (occurrence: US)
  Receive Date: 20130307
  Receipt Date: 20130307
  Transmission Date: 20140127
  Serious: No
  Sender: FDA-Public Use
  Company Number: US-009507513-1302USA013395

PATIENT
  Age: 16 Year
  Sex: Female
  Weight: 68.27 kg

DRUGS (4)
  1. NEXPLANON [Suspect]
     Indication: CONTRACEPTION
     Dosage: UNK
     Route: 059
     Dates: start: 20130226
  2. ABILIFY [Concomitant]
     Dosage: UNK
  3. ADDERALL TABLETS [Concomitant]
     Dosage: UNK
  4. ZOLOFT [Concomitant]
     Dosage: UNK

REACTIONS (2)
  - Flat affect [Not Recovered/Not Resolved]
  - Depressed mood [Not Recovered/Not Resolved]
